FAERS Safety Report 5810073-7 (Version None)
Quarter: 2008Q3

REPORT INFORMATION
  Report Type: 
  Country: None (occurrence: None)
  Receive Date: 20080715
  Receipt Date: 20080704
  Transmission Date: 20090109
  Serious: Yes (Hospitalization)
  Sender: FDA-Public Use
  Company Number: B0526549A

PATIENT
  Age: 53 Year
  Sex: Female

DRUGS (6)
  1. LAMOTRIGINE [Suspect]
     Route: 048
  2. SERTRALINE [Suspect]
     Route: 065
  3. SULPHONAMIDES (DRUG NAME NOT SPECIFIED) [Suspect]
     Indication: HYPERTONIA
     Route: 065
  4. RISPERIDONE [Concomitant]
     Route: 065
  5. ZOPICLONUM [Concomitant]
     Indication: SLEEP DISORDER THERAPY
     Route: 065
  6. ATORVASTATIN CALCIUM [Concomitant]
     Route: 065

REACTIONS (8)
  - DRUG HYPERSENSITIVITY [None]
  - ERYTHEMA [None]
  - ERYTHEMA MULTIFORME [None]
  - LUNG INFILTRATION [None]
  - PYREXIA [None]
  - RASH SCARLATINIFORM [None]
  - SKIN TEST POSITIVE [None]
  - STEVENS-JOHNSON SYNDROME [None]
